FAERS Safety Report 15002283 (Version 2)
Quarter: 2018Q3

REPORT INFORMATION
  Report Type: Spontaneous
  Country: NL (occurrence: NL)
  Receive Date: 20180612
  Receipt Date: 20180703
  Transmission Date: 20181010
  Serious: Yes (Hospitalization, Other)
  Sender: FDA-Public Use
  Company Number: NL-MYLANLABS-2018M1041591

PATIENT
  Age: 66 Year
  Sex: Female

DRUGS (11)
  1. CITALOPRAM [Suspect]
     Active Substance: CITALOPRAM HYDROBROMIDE
     Indication: PRODUCT USED FOR UNKNOWN INDICATION
  2. LITHIUM. [Suspect]
     Active Substance: LITHIUM
     Dosage: 400 MG, QD
  3. VALPROIC ACID. [Suspect]
     Active Substance: VALPROIC ACID
     Indication: HYPOMANIA
     Dosage: 300 MG, QD
  4. LITHIUM. [Suspect]
     Active Substance: LITHIUM
     Indication: PRODUCT USED FOR UNKNOWN INDICATION
     Dosage: 800 UNK, UNK
  5. VALPROIC ACID. [Suspect]
     Active Substance: VALPROIC ACID
     Dosage: 4000 MG, QD
  6. PREDNISONE. [Suspect]
     Active Substance: PREDNISONE
     Indication: PROTEINURIA
     Dosage: UNK
  7. CITALOPRAM [Suspect]
     Active Substance: CITALOPRAM HYDROBROMIDE
     Dosage: UNK
  8. VALPROIC ACID. [Suspect]
     Active Substance: VALPROIC ACID
     Dosage: 3000 MG, QD
  9. CYCLOPHOSPHAMIDE. [Suspect]
     Active Substance: CYCLOPHOSPHAMIDE
     Indication: PROTEINURIA
     Dosage: UNK
  10. LITHIUM. [Suspect]
     Active Substance: LITHIUM
     Dosage: UNK
  11. VALPROIC ACID. [Suspect]
     Active Substance: VALPROIC ACID
     Dosage: 2500 MG, QD

REACTIONS (21)
  - Cognitive disorder [Recovered/Resolved]
  - Somnolence [Recovered/Resolved]
  - Condition aggravated [Recovered/Resolved]
  - Encephalopathy [Unknown]
  - Proteinuria [Unknown]
  - Decreased activity [Recovered/Resolved]
  - Drug level increased [Recovered/Resolved]
  - Overdose [Recovered/Resolved]
  - Pancytopenia [Recovered/Resolved]
  - Disorientation [Unknown]
  - Delirium [Unknown]
  - Loss of personal independence in daily activities [Recovered/Resolved]
  - Apathy [Unknown]
  - Infection [Unknown]
  - Hypoalbuminaemia [Unknown]
  - Urinary retention [Unknown]
  - Seizure [Unknown]
  - Nephrotic syndrome [Unknown]
  - Toxicity to various agents [Unknown]
  - Cerebral atrophy [Recovered/Resolved]
  - Mania [Unknown]
